FAERS Safety Report 9606168 (Version 1)
Quarter: 2013Q4

REPORT INFORMATION
  Report Type: Spontaneous
  Country: US (occurrence: US)
  Receive Date: 20131008
  Receipt Date: 20131008
  Transmission Date: 20140711
  Serious: No
  Sender: FDA-Public Use
  Company Number: US-AMGEN-USASP2013043757

PATIENT
  Age: 67 Year
  Sex: Female

DRUGS (5)
  1. PROLIA [Suspect]
     Indication: OSTEOPOROSIS POSTMENOPAUSAL
     Dosage: UNK
     Dates: start: 20121022
  2. CALCIUM [Concomitant]
     Dosage: UNK
  3. ENABLEX                            /01760401/ [Concomitant]
     Dosage: UNK
  4. VITAMINS /90003601/ [Concomitant]
     Dosage: UNK
  5. DIURETICS [Concomitant]
     Dosage: UNK

REACTIONS (6)
  - Skin exfoliation [Unknown]
  - Gait disturbance [Unknown]
  - Skin fissures [Unknown]
  - Wound [Unknown]
  - Dermatitis [Unknown]
  - Rash [Unknown]
